FAERS Safety Report 5037056-1 (Version None)
Quarter: 2006Q2

REPORT INFORMATION
  Report Type: 
  Country: None (occurrence: None)
  Receive Date: 20060628
  Receipt Date: 20060621
  Transmission Date: 20061013
  Serious: Yes (Other)
  Sender: FDA-Public Use
  Company Number: NL-JNJFOC-20060604856

PATIENT
  Age: 13 Year
  Sex: Male

DRUGS (2)
  1. RISPERDAL [Suspect]
     Dosage: NORMAL DAILY DOSE UNKNOWN
     Route: 048
  2. RISPERDAL [Suspect]
     Indication: MENTAL DISORDER
     Dosage: ACCIDENTAL DOSE ESTIMATED
     Route: 048

REACTIONS (3)
  - ACCIDENTAL OVERDOSE [None]
  - HYPOTENSION [None]
  - SEDATION [None]
